FAERS Safety Report 18123242 (Version 3)
Quarter: 2020Q4

REPORT INFORMATION
  Report Type: Spontaneous
  Country: US (occurrence: US)
  Receive Date: 20200807
  Receipt Date: 20201014
  Transmission Date: 20210113
  Serious: No
  Sender: FDA-Public Use
  Company Number: US-ASTRAZENECA-2020SE95889

PATIENT
  Age: 63 Year
  Sex: Male
  Weight: 104.3 kg

DRUGS (1)
  1. BYDUREON BCISE [Suspect]
     Active Substance: EXENATIDE
     Indication: TYPE 2 DIABETES MELLITUS
     Dosage: UNKNOWN DOSE ONCE WEEKLY
     Route: 065

REACTIONS (7)
  - Injection site haemorrhage [Unknown]
  - Product dose omission issue [Unknown]
  - Product use issue [Unknown]
  - Device issue [Unknown]
  - Hyperglycaemia [Not Recovered/Not Resolved]
  - Device leakage [Unknown]
  - Product administration error [Unknown]

NARRATIVE: CASE EVENT DATE: 2020
